FAERS Safety Report 10046367 (Version 1)
Quarter: 2014Q1

REPORT INFORMATION
  Report Type: Spontaneous
  Country: US (occurrence: US)
  Receive Date: 20140331
  Receipt Date: 20140331
  Transmission Date: 20141002
  Serious: No
  Sender: FDA-Public Use
  Company Number: US-BIOGENIDEC-2014BI027405

PATIENT
  Sex: Female

DRUGS (20)
  1. TECFIDERA [Suspect]
     Indication: MULTIPLE SCLEROSIS
     Route: 048
     Dates: start: 20140218
  2. GEODON [Concomitant]
  3. BENZACILLN [Concomitant]
  4. LAMOTRIGINE [Concomitant]
  5. NAPROXEN [Concomitant]
  6. BACLOFEN [Concomitant]
  7. TRAZODONE [Concomitant]
  8. SPIRONOLACTONE [Concomitant]
  9. CYCLOBENZAPRINE [Concomitant]
  10. CYANOCOBALAMIN [Concomitant]
  11. EPINEPHRINE [Concomitant]
  12. ADDERALL [Concomitant]
  13. DOXYCYCLINE [Concomitant]
  14. BENZTROPINE [Concomitant]
  15. FINACEA [Concomitant]
  16. GINKGO BILOBA [Concomitant]
  17. VITAMIN B12 [Concomitant]
  18. CALCIUM [Concomitant]
  19. OMEPRAZOLE [Concomitant]
  20. BASE E-POLYETHYLENE GLYCOL PD [Concomitant]

REACTIONS (2)
  - Dementia [Unknown]
  - Hypoaesthesia [Unknown]
